FAERS Safety Report 6176481-2 (Version None)
Quarter: 2009Q2

REPORT INFORMATION
  Report Type: 
  Country: None (occurrence: None)
  Receive Date: 20090501
  Receipt Date: 20090422
  Transmission Date: 20091009
  Serious: Yes (Hospitalization, Other)
  Sender: FDA-Public Use
  Company Number: PHHY2009BR15498

PATIENT
  Age: 82 Year
  Sex: Female

DRUGS (4)
  1. EXELON [Suspect]
     Indication: DEMENTIA ALZHEIMER'S TYPE
     Dosage: 1.5 MG, UNK
     Route: 048
     Dates: start: 20070401
  2. EXELON [Suspect]
     Dosage: 3.0 MG, UNK
     Route: 048
  3. EXELON [Suspect]
     Dosage: 4.5 MG, QD
     Route: 048
  4. ATACAND [Concomitant]
     Indication: HYPERTENSION
     Dosage: 1 DF, QD
     Route: 048

REACTIONS (3)
  - HAEMATEMESIS [None]
  - OESOPHAGEAL HAEMORRHAGE [None]
  - OESOPHAGEAL INJURY [None]
